FAERS Safety Report 9502397 (Version 1)
Quarter: 2013Q3

REPORT INFORMATION
  Report Type: Spontaneous
  Country: US (occurrence: US)
  Receive Date: 20130906
  Receipt Date: 20130906
  Transmission Date: 20140515
  Serious: No
  Sender: FDA-Public Use
  Company Number: US-BIOGENIDEC-2013BI084492

PATIENT
  Sex: Female

DRUGS (2)
  1. TYSABRI [Suspect]
     Indication: MULTIPLE SCLEROSIS
     Route: 042
     Dates: start: 20080319, end: 20101221
  2. TYSABRI [Suspect]
     Indication: MULTIPLE SCLEROSIS
     Route: 042
     Dates: start: 20111111, end: 20121214

REACTIONS (9)
  - Colonoscopy [Recovered/Resolved]
  - Endoscopy [Recovered/Resolved]
  - Emphysema [Not Recovered/Not Resolved]
  - Speech disorder [Not Recovered/Not Resolved]
  - Choking [Not Recovered/Not Resolved]
  - Somnolence [Not Recovered/Not Resolved]
  - Abasia [Not Recovered/Not Resolved]
  - Visual field defect [Not Recovered/Not Resolved]
  - Cataract [Not Recovered/Not Resolved]
